FAERS Safety Report 7960476-X (Version None)
Quarter: 2011Q4

REPORT INFORMATION
  Report Type: 
  Country: None (occurrence: None)
  Receive Date: 20111206
  Receipt Date: 20111128
  Transmission Date: 20120403
  Serious: Yes (Other)
  Sender: FDA-Public Use
  Company Number: PHHY2011US104124

PATIENT
  Age: 59 Year
  Sex: Female
  Weight: 100 kg

DRUGS (3)
  1. MEPERIDINE HYDROCHLORIDE [Suspect]
     Dosage: 50 MG, UNK
  2. HYDROMORPHONE HCL [Suspect]
     Dosage: 1 MG, UNK
     Route: 030
  3. PROMETHAZINE [Suspect]
     Dosage: 25 MG, UNK
     Route: 042

REACTIONS (13)
  - ATELECTASIS [None]
  - OXYGEN SATURATION DECREASED [None]
  - HYPERCAPNIA [None]
  - OEDEMA PERIPHERAL [None]
  - SOMNOLENCE [None]
  - PICKWICKIAN SYNDROME [None]
  - HYPOXIA [None]
  - SINUS TACHYCARDIA [None]
  - TENDERNESS [None]
  - RESPIRATORY ACIDOSIS [None]
  - BUNDLE BRANCH BLOCK RIGHT [None]
  - CONDITION AGGRAVATED [None]
  - BACK PAIN [None]
